FAERS Safety Report 10676811 (Version 4)
Quarter: 2015Q1

REPORT INFORMATION
  Report Type: Report from Study
  Country: DE (occurrence: DE)
  Receive Date: 20141226
  Receipt Date: 20150209
  Transmission Date: 20150720
  Serious: Yes (Death, Hospitalization)
  Sender: FDA-Public Use
  Company Number: DE-BAYER-2014-179409

PATIENT
  Sex: Female

DRUGS (5)
  1. ONDASETRON [Concomitant]
     Active Substance: ONDANSETRON
     Dosage: DAILY DOSE 4 MG
     Dates: start: 20141112
  2. RANITIDIN [Concomitant]
     Active Substance: RANITIDINE HYDROCHLORIDE
     Dosage: DAILY DOSE 150 MG
     Dates: start: 20141118
  3. ASPIRIN. [Concomitant]
     Active Substance: ASPIRIN
     Dosage: DAILY DOSE 100 MG
  4. PAZOPANIB [Suspect]
     Active Substance: PAZOPANIB
     Indication: RENAL CELL CARCINOMA
  5. SORAFENIB (RAF KINASE INHIBITOR) [Suspect]
     Active Substance: SORAFENIB
     Indication: RENAL CELL CARCINOMA
     Dosage: DAILY DOSE OF 400 MG
     Route: 048
     Dates: start: 20141103, end: 20141130

REACTIONS (3)
  - Metastases to peritoneum [Fatal]
  - Vomiting [Not Recovered/Not Resolved]
  - Gastrointestinal perforation [Fatal]

NARRATIVE: CASE EVENT DATE: 20141201
